FAERS Safety Report 14713000 (Version 2)
Quarter: 2018Q2

REPORT INFORMATION
  Report Type: Spontaneous
  Country: US (occurrence: US)
  Receive Date: 20180404
  Receipt Date: 20180604
  Transmission Date: 20180711
  Serious: No
  Sender: FDA-Public Use
  Company Number: PHEH2018US012840

PATIENT
  Sex: Female

DRUGS (2)
  1. ZOFRAN [Suspect]
     Active Substance: ONDANSETRON HYDROCHLORIDE
     Indication: PRODUCT USED FOR UNKNOWN INDICATION
     Route: 042
  2. ZOFRAN [Suspect]
     Active Substance: ONDANSETRON HYDROCHLORIDE
     Indication: HYPEREMESIS GRAVIDARUM
     Route: 048
     Dates: start: 200010, end: 200104

REACTIONS (4)
  - Maternal exposure during pregnancy [Unknown]
  - Product use in unapproved indication [Unknown]
  - Emotional distress [Unknown]
  - Injury [Unknown]
